FAERS Safety Report 14695555 (Version 1)
Quarter: 2018Q1

REPORT INFORMATION
  Report Type: Spontaneous
  Country: US (occurrence: US)
  Receive Date: 20180327
  Receipt Date: 20180327
  Transmission Date: 20180509
  Serious: No
  Sender: FDA-Public Use
  Company Number: None

PATIENT
  Age: 87 Year
  Sex: Female

DRUGS (22)
  1. AMIODARONE [Concomitant]
     Active Substance: AMIODARONE
  2. ASPIRIN. [Concomitant]
     Active Substance: ASPIRIN
  3. FENTANYL. [Concomitant]
     Active Substance: FENTANYL
  4. HEPARIN [Concomitant]
     Active Substance: HEPARIN SODIUM
  5. INSULIN GLARGINE [Suspect]
     Active Substance: INSULIN GLARGINE
     Route: 058
  6. CEFEPIME [Concomitant]
     Active Substance: CEFEPIME HYDROCHLORIDE
  7. INSULIN GLARGINE [Concomitant]
     Active Substance: INSULIN GLARGINE
  8. METOPROLOL. [Concomitant]
     Active Substance: METOPROLOL
  9. AMIKACIN [Concomitant]
     Active Substance: AMIKACIN
  10. NOREPINEPHRINE. [Concomitant]
     Active Substance: NOREPINEPHRINE
  11. ASCORBIC ACID. [Concomitant]
     Active Substance: ASCORBIC ACID
  12. FAMOTIDINE. [Concomitant]
     Active Substance: FAMOTIDINE
  13. LACTATED RINGERS SOLUTION [Concomitant]
     Active Substance: CALCIUM CHLORIDE\POTASSIUM CHLORIDE\SODIUM CHLORIDE\SODIUM LACTATE
  14. HYDROCORTISONE. [Concomitant]
     Active Substance: HYDROCORTISONE
  15. INSULIN ASPART [Concomitant]
     Active Substance: INSULIN ASPART
  16. MIDAZOLAM [Concomitant]
     Active Substance: MIDAZOLAM HYDROCHLORIDE
  17. INSULIN ASPART [Suspect]
     Active Substance: INSULIN ASPART
     Indication: HYPERGLYCAEMIA
     Dosage: MEDIUM SSI 3 TIMERS PER DAY, SC
     Route: 058
     Dates: start: 20170101
  18. DEXTROSE. [Concomitant]
     Active Substance: DEXTROSE
  19. VANCOMYCIN [Concomitant]
     Active Substance: VANCOMYCIN
  20. CHLORHEXADINE [Concomitant]
     Active Substance: CHLORHEXIDINE
  21. FUROSEMIDE. [Concomitant]
     Active Substance: FUROSEMIDE
  22. VASOPRESSIN. [Concomitant]
     Active Substance: VASOPRESSIN

REACTIONS (2)
  - Blood glucose decreased [None]
  - Septic shock [None]

NARRATIVE: CASE EVENT DATE: 20180121
